FAERS Safety Report 18478457 (Version 4)
Quarter: 2022Q1

REPORT INFORMATION
  Report Type: Report from Study
  Country: US (occurrence: US)
  Receive Date: 20201109
  Receipt Date: 20220204
  Transmission Date: 20220423
  Serious: Yes (Hospitalization, Other)
  Sender: FDA-Public Use
  Company Number: US-ABBVIE-20K-163-3425235-00

PATIENT
  Sex: Female
  Weight: 81.720 kg

DRUGS (11)
  1. HUMIRA [Suspect]
     Active Substance: ADALIMUMAB
     Indication: Psoriasis
     Route: 058
  2. HUMIRA [Suspect]
     Active Substance: ADALIMUMAB
     Indication: Psoriatic arthropathy
  3. HUMIRA [Suspect]
     Active Substance: ADALIMUMAB
     Indication: Psoriasis
     Route: 058
  4. HUMIRA [Suspect]
     Active Substance: ADALIMUMAB
     Indication: Psoriatic arthropathy
  5. SIMVASTATIN [Concomitant]
     Active Substance: SIMVASTATIN
     Indication: Blood cholesterol increased
  6. IRON [Concomitant]
     Active Substance: IRON
     Indication: Mineral supplementation
  7. VITAMIN C [Concomitant]
     Active Substance: ASCORBIC ACID
     Indication: Vitamin supplementation
  8. VITAMIN B3 [Concomitant]
     Active Substance: NIACIN
     Indication: Vitamin supplementation
  9. MODERNA COVID-19 VACCINE [Concomitant]
     Active Substance: ELASOMERAN
     Indication: COVID-19 immunisation
     Route: 030
     Dates: start: 20210223, end: 20210223
  10. MODERNA COVID-19 VACCINE [Concomitant]
     Active Substance: ELASOMERAN
     Route: 030
     Dates: start: 20210323, end: 20210323
  11. MODERNA COVID-19 VACCINE [Concomitant]
     Active Substance: ELASOMERAN
     Route: 030
     Dates: start: 20211114, end: 20211114

REACTIONS (13)
  - Heart valve incompetence [Recovered/Resolved]
  - Obesity [Recovering/Resolving]
  - Cerebrovascular accident [Recovered/Resolved]
  - Anosmia [Recovered/Resolved]
  - Wrong technique in product usage process [Unknown]
  - Cardiac murmur [Recovering/Resolving]
  - Anosmia [Recovering/Resolving]
  - Memory impairment [Recovering/Resolving]
  - Accident [Unknown]
  - Limb injury [Unknown]
  - Gastrooesophageal reflux disease [Recovering/Resolving]
  - Blood glucose increased [Recovering/Resolving]
  - Arthritis [Recovering/Resolving]

NARRATIVE: CASE EVENT DATE: 20130101
